FAERS Safety Report 8387930-3 (Version None)
Quarter: 2012Q2

REPORT INFORMATION
  Report Type: 
  Country: None (occurrence: None)
  Receive Date: 20120525
  Receipt Date: 20120517
  Transmission Date: 20120825
  Serious: Yes (Other)
  Sender: FDA-Public Use
  Company Number: US-MERCK-1205USA03387

PATIENT
  Sex: Male

DRUGS (1)
  1. PRINIVIL [Suspect]
     Route: 065

REACTIONS (16)
  - HEADACHE [None]
  - ERECTILE DYSFUNCTION [None]
  - SWELLING FACE [None]
  - ABDOMINAL PAIN [None]
  - COUGH [None]
  - DIZZINESS [None]
  - SYNCOPE [None]
  - BLINDNESS [None]
  - ANXIETY [None]
  - STRESS [None]
  - DEPRESSION [None]
  - MUSCLE SPASMS [None]
  - THROAT TIGHTNESS [None]
  - FATIGUE [None]
  - OEDEMA PERIPHERAL [None]
  - RASH [None]
